FAERS Safety Report 18379996 (Version 2)
Quarter: 2020Q4

REPORT INFORMATION
  Report Type: Spontaneous
  Country: CN (occurrence: CN)
  Receive Date: 20201013
  Receipt Date: 20201021
  Transmission Date: 20210114
  Serious: Yes (Hospitalization, Other)
  Sender: FDA-Public Use
  Company Number: CN-PFIZER INC-2020393131

PATIENT
  Age: 68 Year
  Sex: Male
  Weight: 76 kg

DRUGS (4)
  1. CYTARABINE. [Suspect]
     Active Substance: CYTARABINE
     Indication: ACUTE LEUKAEMIA
     Dosage: 100 MG, ONCE IN EVERY 4 DAYS
     Route: 041
     Dates: start: 20200917, end: 20200925
  2. WATER FOR INJECTION [Concomitant]
     Active Substance: WATER
     Indication: VEHICLE SOLUTION USE
     Dosage: 4 ML, 1X/DAY
     Route: 041
     Dates: start: 20200909, end: 20200916
  3. AZACITIDINE. [Suspect]
     Active Substance: AZACITIDINE
     Indication: ACUTE LEUKAEMIA
     Dosage: 100 MG, 1X/DAY
     Route: 041
     Dates: start: 20200909, end: 20200916
  4. SODIUM CHLORIDE. [Concomitant]
     Active Substance: SODIUM CHLORIDE
     Indication: VEHICLE SOLUTION USE
     Dosage: 196 ML, ONCE IN EVERY 4 DAYS
     Route: 041
     Dates: start: 20200917, end: 20200925

REACTIONS (6)
  - Asthenia [Unknown]
  - Haematochezia [Unknown]
  - Hyperhidrosis [Unknown]
  - Dizziness [Unknown]
  - Full blood count decreased [Unknown]
  - Neoplasm progression [Not Recovered/Not Resolved]

NARRATIVE: CASE EVENT DATE: 20200924
